FAERS Safety Report 23535134 (Version 1)
Quarter: 2024Q1

REPORT INFORMATION
  Report Type: Spontaneous
  Country: GB (occurrence: GB)
  Receive Date: 20240218
  Receipt Date: 20240218
  Transmission Date: 20240409
  Serious: Yes (Other)
  Sender: FDA-Public Use
  Company Number: None

PATIENT
  Age: 71 Year
  Sex: Female
  Weight: 75 kg

DRUGS (6)
  1. EZETIMIBE [Suspect]
     Active Substance: EZETIMIBE
     Indication: Headache
     Dosage: 10 MG, QD (TO BE CRUSHED AND MIXED)
     Route: 065
     Dates: start: 20231023, end: 20240131
  2. EZETIMIBE [Suspect]
     Active Substance: EZETIMIBE
     Indication: Adverse drug reaction
     Dosage: UNK
     Route: 065
     Dates: start: 20240131
  3. Adcal [Concomitant]
     Indication: Ill-defined disorder
     Dosage: CHEW ONE TABLET TWICE A DAY, TO HELP PREVENT OS...
     Route: 065
     Dates: start: 20240131
  4. EZETIMIBE [Concomitant]
     Active Substance: EZETIMIBE
     Indication: Ill-defined disorder
     Dosage: TAKE ONE DAILY. ( TO BE CRUSHED AND MIXED IN WA...
     Route: 065
     Dates: start: 20231130, end: 20240131
  5. BECLOMETHASONE\FORMOTEROL [Concomitant]
     Active Substance: BECLOMETHASONE\FORMOTEROL
     Indication: Ill-defined disorder
     Dosage: PUFFS
     Route: 055
     Dates: start: 20230810
  6. ALBUTEROL [Concomitant]
     Active Substance: ALBUTEROL
     Indication: Ill-defined disorder
     Dosage: INHALE
     Route: 055
     Dates: start: 20230810

REACTIONS (2)
  - Headache [Unknown]
  - Bronchospasm [Unknown]

NARRATIVE: CASE EVENT DATE: 20240131
